FAERS Safety Report 21407872 (Version 2)
Quarter: 2022Q4

REPORT INFORMATION
  Report Type: Spontaneous
  Country: US (occurrence: US)
  Receive Date: 20221004
  Receipt Date: 20221026
  Transmission Date: 20230113
  Serious: No
  Sender: FDA-Public Use
  Company Number: US-BAYER-2022A137404

PATIENT
  Age: 71 Year
  Sex: Male

DRUGS (2)
  1. KOGENATE FS [Suspect]
     Active Substance: ANTIHEMOPHILIC FACTOR, HUMAN RECOMBINANT
     Dosage: 3836 IU
     Route: 042
  2. KOGENATE FS [Suspect]
     Active Substance: ANTIHEMOPHILIC FACTOR, HUMAN RECOMBINANT
     Dosage: IV DOSES POST ENDOSCOPIC BIOPSY FOR 5 DAYS
     Route: 042
     Dates: start: 20221013, end: 20221017

REACTIONS (2)
  - Blood pressure increased [None]
  - Biopsy [None]

NARRATIVE: CASE EVENT DATE: 20220929
